FAERS Safety Report 8398590-X (Version None)
Quarter: 2012Q2

REPORT INFORMATION
  Report Type: 
  Country: None (occurrence: None)
  Receive Date: 20120531
  Receipt Date: 20120523
  Transmission Date: 20120825
  Serious: Yes (Other)
  Sender: FDA-Public Use
  Company Number: US-BRISTOL-MYERS SQUIBB COMPANY-16619553

PATIENT
  Age: 47 Year
  Sex: Female
  Weight: 73 kg

DRUGS (4)
  1. MAXALT [Concomitant]
     Indication: MIGRAINE
  2. COVERA-HS [Suspect]
     Indication: VASOSPASM
     Dosage: FORM: TAB
     Route: 048
     Dates: start: 20110901, end: 20111201
  3. BUSPAR [Suspect]
     Route: 048
  4. COVERA-HS [Suspect]
     Indication: MIGRAINE
     Dosage: FORM: TAB
     Route: 048
     Dates: start: 20110901, end: 20111201

REACTIONS (4)
  - DYSPHONIA [None]
  - JOINT SWELLING [None]
  - MIGRAINE [None]
  - ANGINA PECTORIS [None]
